FAERS Safety Report 7982215-9 (Version None)
Quarter: 2011Q4

REPORT INFORMATION
  Report Type: 
  Country: None (occurrence: None)
  Receive Date: 20111215
  Receipt Date: 20111206
  Transmission Date: 20120403
  Serious: Yes (Disabling, Other)
  Sender: FDA-Public Use
  Company Number: US-ELI_LILLY_AND_COMPANY-US201112001918

PATIENT
  Sex: Female

DRUGS (4)
  1. HUMALOG MIX 75/25 [Suspect]
     Indication: TYPE 1 DIABETES MELLITUS
     Dosage: 47 U, UNKNOWN
     Dates: start: 20090101
  2. HUMALOG MIX 75/25 [Suspect]
     Dosage: 47 U, UNKNOWN
     Dates: start: 20090101
  3. HUMULIN 70/30 [Suspect]
     Dosage: UNK, UNKNOWN
     Dates: end: 20090101
  4. FORTEO [Suspect]
     Dosage: UNK UNK, UNKNOWN

REACTIONS (8)
  - HIP FRACTURE [None]
  - FALL [None]
  - LOWER LIMB FRACTURE [None]
  - JOINT INJURY [None]
  - EMOTIONAL DISORDER [None]
  - NEUROPATHY PERIPHERAL [None]
  - BALANCE DISORDER [None]
  - INCORRECT DOSE ADMINISTERED [None]
